FAERS Safety Report 9468409 (Version 3)
Quarter: 2013Q3

REPORT INFORMATION
  Report Type: Report from Study
  Country: US (occurrence: US)
  Receive Date: 20130821
  Receipt Date: 20130827
  Transmission Date: 20140515
  Serious: Yes (Death, Hospitalization)
  Sender: FDA-Public Use
  Company Number: PHEH2013US015856

PATIENT
  Age: 67 Year
  Sex: Male

DRUGS (2)
  1. MYFORTIC [Suspect]
     Indication: LUNG TRANSPLANT
     Dosage: 720 MG, BID
     Route: 048
     Dates: start: 201211
  2. MYFORTIC [Suspect]
     Dosage: 180 MG, BID
     Route: 048

REACTIONS (2)
  - Death [Fatal]
  - Lung transplant rejection [Unknown]
